FAERS Safety Report 14114617 (Version 1)
Quarter: 2017Q4

REPORT INFORMATION
  Report Type: Spontaneous
  Country: US (occurrence: US)
  Receive Date: 20171022
  Receipt Date: 20171022
  Transmission Date: 20180321
  Serious: Yes (Other)
  Sender: FDA-Public Use
  Company Number: None

PATIENT
  Age: 50 Year
  Sex: Male
  Weight: 84.15 kg

DRUGS (2)
  1. METOPROLOL SUCCINATE. [Concomitant]
     Active Substance: METOPROLOL SUCCINATE
  2. PYRIDOSTIGMINE ER 180 MG TAB [Suspect]
     Active Substance: PYRIDOSTIGMINE BROMIDE
     Indication: NEUROMYOPATHY
     Dosage: ?          QUANTITY:1 TABLET(S);?
     Route: 048

REACTIONS (5)
  - Nausea [None]
  - Product leakage [None]
  - Dysgeusia [None]
  - Night sweats [None]
  - Lethargy [None]

NARRATIVE: CASE EVENT DATE: 20171005
